FAERS Safety Report 9570518 (Version 1)
Quarter: 2013Q3

REPORT INFORMATION
  Report Type: Spontaneous
  Country: US (occurrence: None)
  Receive Date: 20130926
  Receipt Date: 20130926
  Transmission Date: 20140515
  Serious: No
  Sender: FDA-Public Use
  Company Number: None

PATIENT
  Age: 57 Year
  Sex: Female
  Weight: 52.16 kg

DRUGS (1)
  1. CIPRO [Suspect]

REACTIONS (8)
  - Dizziness [None]
  - Asthenia [None]
  - Paraesthesia [None]
  - Nail bed disorder [None]
  - Retinal haemorrhage [None]
  - Sensory loss [None]
  - Chest pain [None]
  - Dyspnoea [None]
